FAERS Safety Report 6166368-3 (Version None)
Quarter: 2009Q2

REPORT INFORMATION
  Report Type: 
  Country: None (occurrence: None)
  Receive Date: 20090424
  Receipt Date: 20081223
  Transmission Date: 20091009
  Serious: No
  Sender: FDA-Public Use
  Company Number: A0758130A

PATIENT
  Age: 69 Year
  Sex: Female

DRUGS (4)
  1. DEXEDRINE [Suspect]
     Indication: NARCOLEPSY
     Route: 048
  2. DEXEDRINE [Suspect]
     Route: 048
     Dates: start: 20070101, end: 20070101
  3. DEXEDRINE [Suspect]
     Route: 048
  4. DEXTROSTAT [Suspect]
     Dosage: 60MG PER DAY

REACTIONS (6)
  - AGITATION [None]
  - CONFUSIONAL STATE [None]
  - DEPRESSION [None]
  - DRUG INEFFECTIVE [None]
  - FATIGUE [None]
  - THERAPEUTIC RESPONSE DECREASED [None]
